FAERS Safety Report 17422602 (Version 1)
Quarter: 2020Q1

REPORT INFORMATION
  Report Type: Spontaneous
  Country: FR (occurrence: FR)
  Receive Date: 20200215
  Receipt Date: 20200215
  Transmission Date: 20200409
  Serious: Yes (Hospitalization)
  Sender: FDA-Public Use
  Company Number: FR-ROCHE-2550647

PATIENT
  Age: 31 Year
  Sex: Male

DRUGS (3)
  1. VALIUM [Suspect]
     Active Substance: DIAZEPAM
     Indication: DRUG USE DISORDER
     Route: 048
     Dates: start: 201903
  2. CONCERTA [Concomitant]
     Active Substance: METHYLPHENIDATE HYDROCHLORIDE
  3. BUPRENORPHINE. [Concomitant]
     Active Substance: BUPRENORPHINE

REACTIONS (1)
  - Drug use disorder [Recovering/Resolving]
